FAERS Safety Report 24022877 (Version 1)
Quarter: 2024Q2

REPORT INFORMATION
  Report Type: Spontaneous
  Country: AU (occurrence: AU)
  Receive Date: 20240627
  Receipt Date: 20240627
  Transmission Date: 20240715
  Serious: No
  Sender: FDA-Public Use
  Company Number: AU-ROCHE-3551348

PATIENT
  Age: 94 Year
  Sex: Male

DRUGS (2)
  1. VABYSMO [Suspect]
     Active Substance: FARICIMAB\FARICIMAB-SVOA
     Indication: Product used for unknown indication
     Dosage: ON 22/FEB/2024, HE RECEIVED LAST DOSE.? FREQUENCY TEXT:4X 4 WEEKLY
     Route: 065
     Dates: start: 202303
  2. EYLEA [Concomitant]
     Active Substance: AFLIBERCEPT
     Dates: start: 2021

REACTIONS (1)
  - Iridocyclitis [Unknown]
